FAERS Safety Report 18307693 (Version 6)
Quarter: 2020Q4

REPORT INFORMATION
  Report Type: Spontaneous
  Country: US (occurrence: US)
  Receive Date: 20200924
  Receipt Date: 20201120
  Transmission Date: 20210113
  Serious: Yes (Death, Other)
  Sender: FDA-Public Use
  Company Number: US-PFIZER INC-2020363717

PATIENT
  Age: 58 Year
  Sex: Female

DRUGS (2)
  1. ZOSYN [Suspect]
     Active Substance: PIPERACILLIN SODIUM\TAZOBACTAM SODIUM
     Indication: SEPTIC SHOCK
     Dosage: 4.5 G (4.5 GRAM DOSE IN 150 OF FLUID)
     Route: 042
     Dates: start: 20200830, end: 20200830
  2. ZOSYN [Suspect]
     Active Substance: PIPERACILLIN SODIUM\TAZOBACTAM SODIUM
     Indication: PNEUMONIA

REACTIONS (4)
  - Sepsis [Unknown]
  - Multiple organ dysfunction syndrome [Unknown]
  - Cardiac arrest [Fatal]
  - Anaphylactic reaction [Unknown]

NARRATIVE: CASE EVENT DATE: 2020
